FAERS Safety Report 12817098 (Version 2)
Quarter: 2016Q4

REPORT INFORMATION
  Report Type: Spontaneous
  Country: US (occurrence: US)
  Receive Date: 20161005
  Receipt Date: 20161020
  Transmission Date: 20170207
  Serious: Yes (Other)
  Sender: FDA-Public Use
  Company Number: US-ALEXION PHARMACEUTICALS INC.-A201607435

PATIENT
  Age: 2 Year
  Sex: Female

DRUGS (2)
  1. SOLIRIS [Suspect]
     Active Substance: ECULIZUMAB
     Indication: HAEMOLYTIC URAEMIC SYNDROME
     Dosage: 300 MG, Q3W
     Route: 042
     Dates: end: 20160929
  2. SOLIRIS [Suspect]
     Active Substance: ECULIZUMAB
     Dosage: 600 MG, QWX2
     Route: 042

REACTIONS (8)
  - Adverse event [Unknown]
  - Viral infection [Recovered/Resolved]
  - Blood urine present [Not Recovered/Not Resolved]
  - Incorrect dose administered [Recovered/Resolved]
  - Blood test abnormal [Unknown]
  - Proteinuria [Not Recovered/Not Resolved]
  - Thrombotic microangiopathy [Unknown]
  - Upper respiratory tract infection [Unknown]

NARRATIVE: CASE EVENT DATE: 20160929
